FAERS Safety Report 13755935 (Version 4)
Quarter: 2017Q3

REPORT INFORMATION
  Report Type: Report from Study
  Country: BR (occurrence: BR)
  Receive Date: 20170714
  Receipt Date: 20170817
  Transmission Date: 20171127
  Serious: Yes (Hospitalization, Other)
  Sender: FDA-Public Use
  Company Number: PHHY2017BR103072

PATIENT
  Sex: Female
  Weight: 78 kg

DRUGS (14)
  1. DIOVAN AMLO FIX [Suspect]
     Active Substance: AMLODIPINE\VALSARTAN
     Indication: HYPERTENSION
     Dosage: 1 DF (AMLODIPINE 12.5 MG, VALSARTAN 80 MG), QD
     Route: 048
     Dates: end: 201406
  2. LOSARTAN. [Concomitant]
     Active Substance: LOSARTAN
     Indication: HYPERTENSION
     Dosage: (2 MONTHS AGO SUSPENDED )
     Route: 048
  3. ERYTHROPOIETIN [Concomitant]
     Active Substance: ERYTHROPOIETIN
     Dosage: 10000 IU, QW (FOR THREE MONTHS)
     Route: 065
     Dates: start: 2016
  4. DIOSMIN [Concomitant]
     Active Substance: DIOSMIN
     Indication: FLUID RETENTION
     Dosage: 2 DF, UNK
     Route: 048
  5. DIGEPLUS [Concomitant]
     Indication: DYSPEPSIA
     Dosage: 3 DF, QD
     Route: 048
     Dates: start: 2014
  6. VITAMIN D [Concomitant]
     Active Substance: CHOLECALCIFEROL
     Indication: PRODUCT USED FOR UNKNOWN INDICATION
     Dosage: 10 DF, QW
     Route: 065
  7. ERYTHROPOIETIN [Concomitant]
     Active Substance: ERYTHROPOIETIN
     Indication: ANAEMIA
     Dosage: 10000 IU, QW (FOR THREE MONTHS)
     Route: 065
     Dates: start: 2014
  8. PURAN [Concomitant]
     Active Substance: LEVOTHYROXINE SODIUM
     Indication: HORMONE REPLACEMENT THERAPY
     Dosage: 1 DF, (USED MORE THAN 20 YEARS)
     Route: 048
  9. ATENOLOL. [Concomitant]
     Active Substance: ATENOLOL
     Indication: HYPERTENSION
     Dosage: (2 MONTHS AGO SUSPENDED )
     Route: 048
  10. NEBLOCK [Concomitant]
     Active Substance: NEBIVOLOL HYDROCHLORIDE
     Indication: HYPERTENSION
     Dosage: 1 DF, QD
     Route: 048
  11. DIOSMIN [Concomitant]
     Active Substance: DIOSMIN
     Indication: PERIPHERAL VASCULAR DISORDER
  12. DIOVAN [Suspect]
     Active Substance: VALSARTAN
     Indication: HYPERTENSION
     Dosage: 80 MG, QD (FROM 1 MONTHS AGO)
     Route: 048
  13. ERYTHROPOIETIN [Concomitant]
     Active Substance: ERYTHROPOIETIN
     Dosage: 10000 IU, QW (FOR THREE MONTHS)
     Route: 065
     Dates: start: 201703
  14. FOLATE [Concomitant]
     Active Substance: FOLATE SODIUM
     Indication: ANAEMIA
     Dosage: 1 DF, UNK
     Route: 048
     Dates: start: 2014

REACTIONS (19)
  - Infection [Unknown]
  - Gastrooesophageal reflux disease [Not Recovered/Not Resolved]
  - Malaise [Unknown]
  - Urinary tract infection [Recovered/Resolved]
  - Pneumonia [Unknown]
  - Sepsis [Unknown]
  - Angioedema [Recovering/Resolving]
  - Varicose vein [Recovered/Resolved]
  - Limb injury [Recovered/Resolved]
  - Embolism [Unknown]
  - Condition aggravated [Recovered/Resolved]
  - Uterine prolapse [Recovered/Resolved]
  - Pulmonary embolism [Recovered/Resolved]
  - Condition aggravated [Not Recovered/Not Resolved]
  - Urinary incontinence [Not Recovered/Not Resolved]
  - Pain [Unknown]
  - Peripheral swelling [Recovered/Resolved]
  - Pain in extremity [Unknown]
  - Gait inability [Unknown]

NARRATIVE: CASE EVENT DATE: 2006
